FAERS Safety Report 16967917 (Version 2)
Quarter: 2020Q1

REPORT INFORMATION
  Report Type: Report from Study
  Country: GB (occurrence: GB)
  Receive Date: 20191028
  Receipt Date: 20200212
  Transmission Date: 20200409
  Serious: Yes (Hospitalization, Other)
  Sender: FDA-Public Use
  Company Number: GB-ELI_LILLY_AND_COMPANY-GB201910009107

PATIENT
  Age: 74 Year
  Sex: Female

DRUGS (3)
  1. TERIPARATIDE [Suspect]
     Active Substance: TERIPARATIDE
     Dosage: 20 UG, DAILY, RESTARTED
     Route: 058
  2. TERIPARATIDE [Suspect]
     Active Substance: TERIPARATIDE
     Indication: OSTEOPOROSIS
     Dosage: 20 UG, DAILY
     Route: 058
     Dates: start: 20171012, end: 20190908
  3. VITAMIN D3 [Concomitant]
     Active Substance: CHOLECALCIFEROL
     Indication: PRODUCT USED FOR UNKNOWN INDICATION

REACTIONS (7)
  - Back pain [Recovering/Resolving]
  - Mass [Unknown]
  - Swelling [Recovered/Resolved]
  - Malaise [Recovering/Resolving]
  - Chronic obstructive pulmonary disease [Recovering/Resolving]
  - Pain in extremity [Unknown]
  - Fall [Recovered/Resolved]
